FAERS Safety Report 5431498-8 (Version None)
Quarter: 2007Q3

REPORT INFORMATION
  Report Type: 
  Country: None (occurrence: None)
  Receive Date: 20070830
  Receipt Date: 20070723
  Transmission Date: 20080115
  Serious: Yes (Other)
  Sender: FDA-Public Use
  Company Number: A0665798A

PATIENT
  Sex: Female

DRUGS (5)
  1. WELLBUTRIN [Suspect]
     Indication: DEPRESSION
     Dosage: 150MG THREE TIMES PER DAY
     Route: 048
     Dates: start: 20070625
  2. ALCOHOL [Concomitant]
  3. SYNTHROID [Concomitant]
  4. UNSPECIFIED MEDICATION [Concomitant]
  5. LIPITOR [Concomitant]

REACTIONS (1)
  - AGGRESSION [None]
